FAERS Safety Report 8245604-3 (Version None)
Quarter: 2012Q1

REPORT INFORMATION
  Report Type: 
  Country: None (occurrence: None)
  Receive Date: 20120330
  Receipt Date: 20120321
  Transmission Date: 20120608
  Serious: Yes (Hospitalization)
  Sender: FDA-Public Use
  Company Number: US-BIOGENIDEC-2012BI004480

PATIENT
  Age: 62 Year
  Sex: Female

DRUGS (3)
  1. TYSABRI [Suspect]
     Indication: MULTIPLE SCLEROSIS
     Route: 042
     Dates: start: 20050208
  2. TYSABRI [Suspect]
     Route: 042
     Dates: start: 20120131
  3. TYSABRI [Suspect]
     Route: 042
     Dates: start: 20061102, end: 20111122

REACTIONS (2)
  - SEPTIC SHOCK [None]
  - SEPSIS [None]
